FAERS Safety Report 9547122 (Version 2)
Quarter: 2014Q1

REPORT INFORMATION
  Report Type: Spontaneous
  Country: GB (occurrence: GB)
  Receive Date: 20130924
  Receipt Date: 20140131
  Transmission Date: 20141002
  Serious: Yes (Hospitalization, Other)
  Sender: FDA-Public Use
  Company Number: PHFR2013GB005406

PATIENT
  Sex: Male
  Weight: 103 kg

DRUGS (6)
  1. CLOZARIL [Suspect]
     Indication: SCHIZOPHRENIA
     Dosage: UNK
     Route: 048
     Dates: start: 20080307
  2. CLOZARIL [Suspect]
     Indication: HALLUCINATION
     Dosage: 250 MG, DAILY (100 MG LUNCH AND 150 MG TEA)
     Route: 048
  3. CLOZARIL [Suspect]
     Indication: PSYCHOTIC DISORDER
  4. SODIUM VALPROATE [Concomitant]
     Indication: AFFECTIVE DISORDER
     Dosage: 1000 MG, DAILY
     Route: 048
  5. REBOXETINE [Concomitant]
     Indication: DEPRESSION
     Dosage: 4 MG, DAILY
     Route: 048
  6. PIPERAZINE [Concomitant]
     Indication: SALIVARY HYPERSECRETION
     Dosage: 100 MG, DAILY

REACTIONS (9)
  - Colitis ulcerative [Recovered/Resolved with Sequelae]
  - Intestinal ulcer [Unknown]
  - Rectal haemorrhage [Unknown]
  - Crohn^s disease [Unknown]
  - Gastroenteritis [Not Recovered/Not Resolved]
  - Inflammatory bowel disease [Unknown]
  - Circulatory collapse [Unknown]
  - Constipation [Not Recovered/Not Resolved]
  - White blood cell count increased [Unknown]
